FAERS Safety Report 6615541-6 (Version None)
Quarter: 2010Q1

REPORT INFORMATION
  Report Type: 
  Country: None (occurrence: None)
  Receive Date: 20100305
  Receipt Date: 20100219
  Transmission Date: 20100710
  Serious: Yes (Other)
  Sender: FDA-Public Use
  Company Number: JP-BAYER-200910109BYL

PATIENT
  Age: 61 Year
  Sex: Male
  Weight: 80 kg

DRUGS (11)
  1. NEXAVAR [Suspect]
     Indication: RENAL CELL CARCINOMA
     Dosage: UNIT DOSE: 200 MG
     Route: 048
     Dates: start: 20080512, end: 20081203
  2. NEXAVAR [Suspect]
     Dosage: UNIT DOSE: 200 MG
     Route: 048
     Dates: start: 20081226, end: 20090414
  3. NEXAVAR [Suspect]
     Dosage: UNIT DOSE: 200 MG
     Route: 048
     Dates: start: 20090427
  4. ZOMETA [Suspect]
     Indication: DRUG USE FOR UNKNOWN INDICATION
     Route: 041
  5. ACTOS [Concomitant]
     Route: 048
     Dates: start: 20080512, end: 20090803
  6. METHYCOBAL [Concomitant]
     Route: 048
     Dates: start: 20080512, end: 20090803
  7. MAGMITT [Concomitant]
     Route: 048
     Dates: start: 20080512, end: 20090803
  8. ROHYPNOL [Concomitant]
     Route: 048
     Dates: start: 20080512, end: 20090803
  9. PREDONINE [Concomitant]
     Route: 048
     Dates: start: 20080531, end: 20090803
  10. OMEPRAL [Concomitant]
     Route: 048
     Dates: start: 20080531, end: 20090803
  11. NOVAMIN [Concomitant]
     Route: 048
     Dates: start: 20081111, end: 20081118

REACTIONS (2)
  - IMPETIGO [None]
  - OSTEONECROSIS [None]
